FAERS Safety Report 8439039-8 (Version None)
Quarter: 2012Q2

REPORT INFORMATION
  Report Type: 
  Country: None (occurrence: None)
  Receive Date: 20120615
  Receipt Date: 20120604
  Transmission Date: 20120825
  Serious: Yes (Hospitalization)
  Sender: FDA-Public Use
  Company Number: US-ELI_LILLY_AND_COMPANY-US201206001342

PATIENT
  Age: 50 Year
  Sex: Male

DRUGS (8)
  1. FISH OIL [Concomitant]
  2. TRILIPIX [Concomitant]
  3. GABAPENTIN [Concomitant]
  4. MOBIC [Concomitant]
  5. ASPIRIN [Concomitant]
  6. METHADONE HCL [Concomitant]
     Dosage: 20 MG, TID
  7. CYMBALTA [Suspect]
     Indication: DEPRESSION
     Dosage: 60 MG, BID
     Dates: start: 20080101
  8. SOMA [Concomitant]
     Dosage: UNK, BID

REACTIONS (14)
  - PAIN [None]
  - BACK DISORDER [None]
  - MOOD ALTERED [None]
  - BLOOD TESTOSTERONE DECREASED [None]
  - AGGRESSION [None]
  - SURGERY [None]
  - SKIN LESION [None]
  - PERSONALITY CHANGE [None]
  - BLOOD GLUCOSE INCREASED [None]
  - DRUG DOSE OMISSION [None]
  - ARTHRITIS [None]
  - DEPRESSION [None]
  - NEURALGIA [None]
  - MOBILITY DECREASED [None]
